FAERS Safety Report 6240565-0 (Version None)
Quarter: 2009Q2

REPORT INFORMATION
  Report Type: 
  Country: None (occurrence: None)
  Receive Date: 20090623
  Receipt Date: 20080929
  Transmission Date: 20091009
  Serious: No
  Sender: FDA-Public Use
  Company Number: US-ASTRAZENECA-2008UW21005

PATIENT
  Age: 49 Year
  Sex: Male

DRUGS (7)
  1. PULMICORT FLEXHALER [Suspect]
     Dosage: 180 MCG 1 PUFF DAILY
     Route: 055
  2. METFORMIN HCL [Concomitant]
  3. TOPROL-XL [Concomitant]
  4. NITROGLYCERIN [Concomitant]
  5. PLAVIX [Concomitant]
  6. ALTACE [Concomitant]
  7. PENTASA [Concomitant]

REACTIONS (1)
  - BLOOD GLUCOSE INCREASED [None]
